FAERS Safety Report 6535574-8 (Version None)
Quarter: 2010Q1

REPORT INFORMATION
  Report Type: 
  Country: None (occurrence: None)
  Receive Date: 20100113
  Receipt Date: 20100105
  Transmission Date: 20100710
  Serious: Yes (Other)
  Sender: FDA-Public Use
  Company Number: CA-BAYER-200941004NA

PATIENT
  Age: 58 Year
  Sex: Male

DRUGS (5)
  1. AVELOX [Suspect]
     Indication: SINUSITIS
     Dosage: TOTAL DAILY DOSE: 400 MG  UNIT DOSE: 400 MG
     Dates: start: 20091112, end: 20091116
  2. TYLENOL (CAPLET) [Concomitant]
  3. ADVIL [Concomitant]
  4. 222 [Concomitant]
  5. ACETYLSALICYLIC ACID [Concomitant]

REACTIONS (7)
  - BALANCE DISORDER [None]
  - CEREBROVASCULAR ACCIDENT [None]
  - CONFUSIONAL STATE [None]
  - DISORIENTATION [None]
  - DYSARTHRIA [None]
  - FATIGUE [None]
  - HYPOAESTHESIA [None]
